FAERS Safety Report 10792332 (Version 1)
Quarter: 2015Q1

REPORT INFORMATION
  Report Type: Spontaneous
  Country: US (occurrence: US)
  Receive Date: 20150213
  Receipt Date: 20150213
  Transmission Date: 20150721
  Serious: No
  Sender: FDA-Public Use
  Company Number: US-GLAXOSMITHKLINE-A1081720A

PATIENT

DRUGS (4)
  1. NICORETTE [Suspect]
     Active Substance: NICOTINE
     Route: 002
  2. NICORETTE [Suspect]
     Active Substance: NICOTINE
     Route: 002
  3. NICORETTE [Suspect]
     Active Substance: NICOTINE
     Route: 002
  4. NICORETTE [Suspect]
     Active Substance: NICOTINE
     Route: 002

REACTIONS (8)
  - Drug administration error [Unknown]
  - Nausea [Unknown]
  - Device failure [Unknown]
  - Palpitations [Unknown]
  - Feeling drunk [Unknown]
  - Mouth ulceration [Unknown]
  - Overdose [Unknown]
  - Malaise [Unknown]
